FAERS Safety Report 20895847 (Version 8)
Quarter: 2023Q2

REPORT INFORMATION
  Report Type: Report from Study
  Country: PE (occurrence: PE)
  Receive Date: 20220531
  Receipt Date: 20230623
  Transmission Date: 20230721
  Serious: Yes (Other)
  Sender: FDA-Public Use
  Company Number: PE-NOVARTISPH-NVSC2021PE210142

PATIENT
  Age: 58 Year
  Sex: Female
  Weight: 60 kg

DRUGS (1)
  1. KISQALI [Suspect]
     Active Substance: RIBOCICLIB
     Indication: Breast cancer metastatic
     Dosage: 600 MG, QD
     Route: 048
     Dates: start: 20210906

REACTIONS (29)
  - Endometritis [Unknown]
  - Endometrial thickening [Unknown]
  - Disease recurrence [Unknown]
  - Drug-induced liver injury [Unknown]
  - Atrophy [Unknown]
  - Decreased immune responsiveness [Unknown]
  - COVID-19 [Unknown]
  - Dysphonia [Recovering/Resolving]
  - Oropharyngeal pain [Unknown]
  - Nasal congestion [Unknown]
  - Weight decreased [Unknown]
  - Tension [Unknown]
  - Skin exfoliation [Recovered/Resolved]
  - Onychomycosis [Unknown]
  - Flatulence [Unknown]
  - Abdominal discomfort [Recovering/Resolving]
  - Skin exfoliation [Unknown]
  - Uterine disorder [Unknown]
  - Blood glucose increased [Unknown]
  - Spinal pain [Unknown]
  - Back pain [Unknown]
  - Hypersensitivity [Unknown]
  - Nodule [Recovered/Resolved]
  - Nausea [Unknown]
  - Pruritus [Recovered/Resolved]
  - Abdominal pain upper [Unknown]
  - Pain [Unknown]
  - Inappropriate schedule of product administration [Unknown]
  - Decreased immune responsiveness [Unknown]

NARRATIVE: CASE EVENT DATE: 20210906
